FAERS Safety Report 7676399-X (Version None)
Quarter: 2011Q3

REPORT INFORMATION
  Report Type: 
  Country: None (occurrence: None)
  Receive Date: 20110811
  Receipt Date: 20110808
  Transmission Date: 20111222
  Serious: No
  Sender: FDA-Public Use
  Company Number: US-PFIZER INC-2011141284

PATIENT
  Sex: Female

DRUGS (2)
  1. AZITHROMYCIN [Suspect]
     Indication: NASOPHARYNGITIS
     Dosage: 250 MG, FREQUENCY UNKNOWN
     Dates: start: 20110623
  2. AZITHROMYCIN [Suspect]
     Indication: COUGH

REACTIONS (2)
  - FEELING ABNORMAL [None]
  - FATIGUE [None]
